FAERS Safety Report 10914571 (Version 1)
Quarter: 2015Q1

REPORT INFORMATION
  Report Type: Spontaneous
  Country: US (occurrence: US)
  Receive Date: 20150313
  Receipt Date: 20150313
  Transmission Date: 20150721
  Serious: No
  Sender: FDA-Public Use
  Company Number: US-GLAXOSMITHKLINE-US2015026701

PATIENT
  Sex: Female

DRUGS (5)
  1. ANORO ELLIPTA [Suspect]
     Active Substance: UMECLIDINIUM BROMIDE\VILANTEROL TRIFENATATE
     Indication: ASTHMA
     Dosage: UNK UNK, QD
     Route: 055
     Dates: start: 2014
  2. ANORO ELLIPTA [Suspect]
     Active Substance: UMECLIDINIUM BROMIDE\VILANTEROL TRIFENATATE
     Indication: COUGH
  3. MILK THISTLE [Concomitant]
     Active Substance: MILK THISTLE
  4. BREO ELLIPTA [Suspect]
     Active Substance: FLUTICASONE FUROATE\VILANTEROL TRIFENATATE
     Indication: ASTHMA
     Dosage: UNK UNK, QD
     Route: 055
     Dates: start: 201501
  5. HORSETAIL [Concomitant]

REACTIONS (4)
  - Swelling face [Not Recovered/Not Resolved]
  - Local swelling [Unknown]
  - Laryngitis [Not Recovered/Not Resolved]
  - Dysphonia [Not Recovered/Not Resolved]
